FAERS Safety Report 23816337 (Version 1)
Quarter: 2024Q2

REPORT INFORMATION
  Report Type: Report from Study
  Country: US (occurrence: US)
  Receive Date: 20240503
  Receipt Date: 20240503
  Transmission Date: 20240716
  Serious: Yes (Hospitalization)
  Sender: FDA-Public Use
  Company Number: US-MYLANLABS-2024M1025900

PATIENT
  Sex: Male
  Weight: 93.44 kg

DRUGS (1)
  1. GLATIRAMER ACETATE [Suspect]
     Active Substance: GLATIRAMER ACETATE
     Indication: Multiple sclerosis
     Dosage: 40 MILLIGRAM, 3XW (THREE TIMES A WEEK)
     Route: 065

REACTIONS (6)
  - Fall [Unknown]
  - Balance disorder [Unknown]
  - Sciatica [Unknown]
  - Bradykinesia [Unknown]
  - Injection site mass [Recovered/Resolved]
  - Product use complaint [Unknown]
